FAERS Safety Report 14152735 (Version 1)
Quarter: 2017Q4

REPORT INFORMATION
  Report Type: Other
  Country: US (occurrence: US)
  Receive Date: 20171102
  Receipt Date: 20171102
  Transmission Date: 20180321
  Serious: Yes (Other)
  Sender: FDA-Public Use
  Company Number: US-SHEFFIELD PHARMACEUTICALS, LLC-2033053

PATIENT
  Age: 74 Year
  Sex: Female
  Weight: 57.27 kg

DRUGS (1)
  1. EQUATE ORASOL [Suspect]
     Active Substance: BENZOCAINE
     Route: 048
     Dates: start: 20170531, end: 20170531

REACTIONS (4)
  - Diarrhoea [None]
  - Malaise [Recovered/Resolved]
  - Presyncope [None]
  - Chest pain [None]

NARRATIVE: CASE EVENT DATE: 20170531
